FAERS Safety Report 18339174 (Version 3)
Quarter: 2020Q4

REPORT INFORMATION
  Report Type: Report from Study
  Country: CA (occurrence: CA)
  Receive Date: 20201002
  Receipt Date: 20201009
  Transmission Date: 20210113
  Serious: Yes (Hospitalization, Other)
  Sender: FDA-Public Use
  Company Number: CA-HLS-202001570

PATIENT
  Age: 64 Year
  Sex: Male

DRUGS (15)
  1. SYNTHROID [Concomitant]
     Active Substance: LEVOTHYROXINE SODIUM
     Dosage: 88MCG PO, DAILY
     Route: 065
  2. FENOFIBRATE MICRONIZED [Concomitant]
     Active Substance: FENOFIBRATE
     Dosage: 200 MCG P.O QPM
     Route: 065
  3. TELMISARTAN. [Concomitant]
     Active Substance: TELMISARTAN
     Dosage: 40 MG PO DAILY
     Route: 065
  4. ACETAMINOPHEN. [Concomitant]
     Active Substance: ACETAMINOPHEN
     Dosage: 80 MG/ML LIQUID
     Route: 048
  5. DIVALPROEX [Concomitant]
     Active Substance: DIVALPROEX SODIUM
     Dosage: 500MG BID
     Route: 048
  6. ROSUVASTATIN. [Concomitant]
     Active Substance: ROSUVASTATIN
     Dosage: 10 MG PO, NIGHTLY
     Route: 065
  7. ABILIFY [Concomitant]
     Active Substance: ARIPIPRAZOLE
     Dosage: 400 MG INTRAMUSCULAR Q28 DAYS
     Route: 030
     Dates: start: 20200219
  8. CLOZARIL [Suspect]
     Active Substance: CLOZAPINE
     Indication: PRODUCT USED FOR UNKNOWN INDICATION
     Dosage: 150 MG ORAL, BID
     Route: 048
  9. CLOZARIL [Suspect]
     Active Substance: CLOZAPINE
     Indication: PRODUCT USED FOR UNKNOWN INDICATION
     Dosage: TWO 25MG PILLS AT SUPPER, 100MG PILL IN THE MORNING AND TWO 100MG PILLS IN THE EVENING.
     Route: 048
     Dates: start: 20040728
  10. PANTOPRAZOLE [Concomitant]
     Active Substance: PANTOPRAZOLE
     Dosage: 40MG PO, BID
     Route: 065
  11. LEVOTHYROXINE. [Concomitant]
     Active Substance: LEVOTHYROXINE
     Dosage: 100 MCG ORAL, DAILY
     Route: 048
     Dates: start: 20200430
  12. LAMOTRIGINE. [Concomitant]
     Active Substance: LAMOTRIGINE
     Dosage: 300 MG PO, NIGHTLY
     Route: 065
  13. ABILIFY [Concomitant]
     Active Substance: ARIPIPRAZOLE
     Dosage: 5 MG PO DAILY
     Route: 065
  14. HYDROMORPHONE [Concomitant]
     Active Substance: HYDROMORPHONE
     Dosage: 0.5-1MG SUBCUTANEOUS Q3H
     Route: 058
  15. LACTULOSE. [Concomitant]
     Active Substance: LACTULOSE
     Dosage: 15 ML P.O, BID. X3 DAYS PRN
     Route: 065

REACTIONS (23)
  - Carbon dioxide decreased [Unknown]
  - Blood chloride increased [Unknown]
  - Abdominal distension [Unknown]
  - Acute kidney injury [Unknown]
  - Pyrexia [Unknown]
  - Influenza [Unknown]
  - Small intestinal obstruction [Unknown]
  - Neutropenia [Unknown]
  - Arteriosclerosis [Unknown]
  - Dizziness [Unknown]
  - Myalgia [Unknown]
  - Rhinitis [Unknown]
  - Cardiac flutter [Unknown]
  - Clubbing [Unknown]
  - Abdominal pain [Unknown]
  - Blood creatinine increased [Unknown]
  - Diarrhoea [Unknown]
  - White blood cell count decreased [Unknown]
  - Cough [Unknown]
  - Dyspnoea [Unknown]
  - Tachycardia [Unknown]
  - Rales [Unknown]
  - Wheezing [Unknown]

NARRATIVE: CASE EVENT DATE: 201905
